FAERS Safety Report 7444799-9 (Version None)
Quarter: 2011Q2

REPORT INFORMATION
  Report Type: 
  Country: None (occurrence: None)
  Receive Date: 20110420
  Receipt Date: 20110324
  Transmission Date: 20111010
  Serious: No
  Sender: FDA-Public Use
  Company Number: 2011-00126

PATIENT
  Age: 63 Year
  Sex: Female
  Weight: 65.7716 kg

DRUGS (4)
  1. ZICAM EXTREME CONGESTION RELIEF [Suspect]
     Dosage: QD X 3 DAYS
     Dates: start: 20110317, end: 20110319
  2. METOPROLOL SUCCINATE [Concomitant]
  3. AMOXICILLIN [Concomitant]
  4. AMITRIPTYLINE HCL [Concomitant]

REACTIONS (2)
  - AGEUSIA [None]
  - ANOSMIA [None]
